FAERS Safety Report 6252178-5 (Version None)
Quarter: 2009Q2

REPORT INFORMATION
  Report Type: 
  Country: None (occurrence: None)
  Receive Date: 20090629
  Receipt Date: 20090618
  Transmission Date: 20091009
  Serious: Yes (Hospitalization)
  Sender: FDA-Public Use
  Company Number: 2009SP013540

PATIENT
  Age: 65 Year
  Sex: Male

DRUGS (3)
  1. PEG-INTRON [Suspect]
     Indication: HEPATITIS C
     Dosage: 120 MCG; UNK; UNK;
     Dates: start: 20090420
  2. OMEPRAZOLE [Concomitant]
  3. CALCITRIOL [Concomitant]

REACTIONS (5)
  - ALTERED STATE OF CONSCIOUSNESS [None]
  - BODY TEMPERATURE INCREASED [None]
  - DIARRHOEA [None]
  - ENCEPHALOPATHY [None]
  - ENDOCARDITIS [None]
